FAERS Safety Report 6227245-2 (Version None)
Quarter: 2009Q2

REPORT INFORMATION
  Report Type: 
  Country: None (occurrence: None)
  Receive Date: 20090610
  Receipt Date: 20090601
  Transmission Date: 20091009
  Serious: Yes (Death)
  Sender: FDA-Public Use
  Company Number: CA-WYE-H09554309

PATIENT
  Sex: Female

DRUGS (2)
  1. ADVIL LIQUI-GELS [Suspect]
     Dosage: ORAL
     Route: 048
  2. CELEBREX [Suspect]
     Indication: ARTHRALGIA
     Dosage: DAILY

REACTIONS (1)
  - PERFORATED ULCER [None]
